FAERS Safety Report 21615787 (Version 1)
Quarter: 2022Q4

REPORT INFORMATION
  Report Type: Spontaneous
  Country: US (occurrence: None)
  Receive Date: 20221117
  Receipt Date: 20221117
  Transmission Date: 20230112
  Serious: No
  Sender: FDA-Public Use
  Company Number: None

PATIENT
  Sex: Female

DRUGS (1)
  1. TACROLIMUS [Suspect]
     Active Substance: TACROLIMUS
     Dosage: OTHER QUANTITY : 1.5MG AM + 1MG PM;?FREQUENCY : DAILY;?
     Route: 048

REACTIONS (1)
  - Diverticulitis [None]
